FAERS Safety Report 5354037-9 (Version None)
Quarter: 2007Q2

REPORT INFORMATION
  Report Type: 
  Country: None (occurrence: None)
  Receive Date: 20070612
  Receipt Date: 20070531
  Transmission Date: 20071010
  Serious: No
  Sender: FDA-Public Use
  Company Number: US-ASTRAZENECA-2006UW10682

PATIENT
  Age: 29 Year
  Sex: Male
  Weight: 113.6 kg

DRUGS (3)
  1. SEROQUEL [Suspect]
     Indication: THINKING ABNORMAL
     Route: 048
     Dates: start: 20010301, end: 20060301
  2. SEROQUEL [Suspect]
     Indication: INSOMNIA
     Route: 048
     Dates: start: 20010301, end: 20060301
  3. SEROQUEL [Suspect]
     Indication: AFFECTIVE DISORDER
     Route: 048
     Dates: start: 20010301, end: 20060301

REACTIONS (1)
  - DIABETES MELLITUS [None]
